FAERS Safety Report 4479080-3 (Version None)
Quarter: 2004Q4

REPORT INFORMATION
  Report Type: 
  Country: None (occurrence: None)
  Receive Date: 20041015
  Receipt Date: 20040930
  Transmission Date: 20050328
  Serious: Yes (Hospitalization)
  Sender: FDA-Public Use
  Company Number: 2004235651DE

PATIENT
  Age: 67 Year
  Sex: Male

DRUGS (3)
  1. BEXTRA [Suspect]
     Indication: SPINAL OSTEOARTHRITIS
     Dosage: ORAL
     Route: 048
     Dates: start: 20020401
  2. COVERSUM (PERINDOPRIL) [Concomitant]
  3. SIMVASTATIN [Concomitant]

REACTIONS (4)
  - CONSTIPATION [None]
  - DIPLEGIA [None]
  - GUILLAIN-BARRE SYNDROME [None]
  - PARAESTHESIA [None]
